FAERS Safety Report 5281226-4 (Version None)
Quarter: 2007Q1

REPORT INFORMATION
  Report Type: 
  Country: None (occurrence: None)
  Receive Date: 20070323
  Receipt Date: 20070312
  Transmission Date: 20070707
  Serious: Yes (Other)
  Sender: FDA-Public Use
  Company Number: 2007SP000693

PATIENT
  Age: 63 Year
  Sex: Female

DRUGS (2)
  1. PEGETRON (PEGINTERFERON ALFA-2B W/RIBAVIRIN) (PEGYLATED INTERFERON ALF [Suspect]
     Dosage: SEE IMAGE
     Route: 058
     Dates: start: 20060110, end: 20061101
  2. PEGETRON (PEGINTERFERON ALFA-2B W/RIBAVIRIN) (PEGYLATED INTERFERON ALF [Suspect]
     Dosage: SEE IMAGE
     Route: 058
     Dates: start: 20060110, end: 20061101

REACTIONS (6)
  - ANXIETY [None]
  - CHEST DISCOMFORT [None]
  - DYSPNOEA [None]
  - OPTIC ISCHAEMIC NEUROPATHY [None]
  - READING DISORDER [None]
  - VISUAL ACUITY REDUCED [None]
